FAERS Safety Report 8169709-0 (Version None)
Quarter: 2012Q1

REPORT INFORMATION
  Report Type: 
  Country: None (occurrence: None)
  Receive Date: 20120228
  Receipt Date: 20120215
  Transmission Date: 20120608
  Serious: Yes (Hospitalization)
  Sender: FDA-Public Use
  Company Number: US-BAYER-2012-017015

PATIENT
  Age: 38 Year

DRUGS (11)
  1. ALBUTEROL [Concomitant]
     Dosage: 2 PUFFS AS NEEDED
  2. SYMBICORT [Concomitant]
     Dosage: UNK UNK, PRN
  3. MOTRIN [Concomitant]
     Dosage: 600 MG, TID
  4. YAZ [Suspect]
     Indication: ENDOMETRIOSIS
     Dosage: UNK
     Route: 048
     Dates: start: 20080618, end: 20081103
  5. SULINDAC [Concomitant]
     Dosage: 150 MG, UNK
     Dates: start: 20080806
  6. CLARITIN [Concomitant]
     Dosage: 10 MG, DAILY
     Dates: start: 20081010
  7. CHERATUSSIN AC [Concomitant]
     Dosage: UNK
     Dates: start: 20080808
  8. LEVAQUIN [Concomitant]
     Dosage: 500 MG, UNK
     Dates: start: 20080828
  9. HYDROCODONE [Concomitant]
     Dosage: 10/325 MG, Q4HR
     Dates: start: 20081011
  10. AZITHROMYCIN [Concomitant]
     Dosage: 250 MG, UNK
     Dates: start: 20080808
  11. NORCO [Concomitant]
     Dosage: 5 MG, UNK
     Dates: start: 20081014

REACTIONS (2)
  - DEEP VEIN THROMBOSIS [None]
  - PULMONARY EMBOLISM [None]
